FAERS Safety Report 8343001-3 (Version None)
Quarter: 2012Q2

REPORT INFORMATION
  Report Type: 
  Country: None (occurrence: None)
  Receive Date: 20120508
  Receipt Date: 20120501
  Transmission Date: 20120825
  Serious: Yes (Other)
  Sender: FDA-Public Use
  Company Number: PHHY2010CA03980

PATIENT
  Sex: Female

DRUGS (10)
  1. ATARAX [Concomitant]
     Dosage: 150 MG, DAILY
  2. CRESTOR [Concomitant]
     Dosage: 10 MG, DAILY
  3. ASPIRIN [Concomitant]
     Dosage: 20 MG, DAILY
  4. RHOTRAL [Concomitant]
     Dosage: 400 MG, BID
  5. GLYBURIDE [Concomitant]
     Dosage: 10 MG, UNK
  6. ACLON [Concomitant]
     Dosage: 30 MG, UNK
  7. SANDOSTATIN LAR [Suspect]
     Indication: ACROMEGALY
     Dosage: 30 MG, QMO
     Route: 030
     Dates: start: 19990823
  8. HYDROCHLOROTHIAZIDE [Concomitant]
     Dosage: 12.5 MG, DAILY
  9. METFORMIN HCL [Concomitant]
     Dosage: 850 MG, TID
  10. ADALAT CC [Concomitant]
     Dosage: 30 MG, DAILY

REACTIONS (9)
  - UPPER LIMB FRACTURE [None]
  - ARTHRALGIA [None]
  - PAIN [None]
  - BALANCE DISORDER [None]
  - FALL [None]
  - NEPHROLITHIASIS [None]
  - BLOOD PRESSURE SYSTOLIC INCREASED [None]
  - ANGINA PECTORIS [None]
  - BLOOD URINE PRESENT [None]
